FAERS Safety Report 5646413-1 (Version None)
Quarter: 2008Q1

REPORT INFORMATION
  Report Type: 
  Country: None (occurrence: None)
  Receive Date: 20080228
  Receipt Date: 20080228
  Transmission Date: 20080703
  Serious: Yes (Other)
  Sender: FDA-Public Use
  Company Number: None

PATIENT
  Age: 62 Year
  Sex: Female

DRUGS (3)
  1. TEGRETOL [Suspect]
     Dosage: 1/2 AT BREAKFAST AND 1/2 AT LUNCH
     Route: 048
  2. ALLIPURINOL [Concomitant]
  3. 75/25 HUMINAL (DIABETIC) [Concomitant]

REACTIONS (1)
  - HALLUCINATION [None]
